FAERS Safety Report 6331366-3 (Version None)
Quarter: 2009Q3

REPORT INFORMATION
  Report Type: 
  Country: None (occurrence: None)
  Receive Date: 20090827
  Receipt Date: 20090821
  Transmission Date: 20100115
  Serious: Yes (Hospitalization, Other)
  Sender: FDA-Public Use
  Company Number: US-ABBOTT-08P-163-0470720-00

PATIENT
  Sex: Female
  Weight: 90.8 kg

DRUGS (2)
  1. HUMIRA [Suspect]
     Indication: RHEUMATOID ARTHRITIS
     Route: 058
  2. COUMADIN [Concomitant]
     Indication: ANTICOAGULANT THERAPY
     Route: 048

REACTIONS (5)
  - ARTHRITIS [None]
  - BACK PAIN [None]
  - INCORRECT DOSE ADMINISTERED [None]
  - INTERVERTEBRAL DISC PROTRUSION [None]
  - WRONG TECHNIQUE IN DRUG USAGE PROCESS [None]
